FAERS Safety Report 6696528-4 (Version None)
Quarter: 2010Q2

REPORT INFORMATION
  Report Type: 
  Country: None (occurrence: None)
  Receive Date: 20100426
  Receipt Date: 20100414
  Transmission Date: 20101027
  Serious: Yes (Hospitalization)
  Sender: FDA-Public Use
  Company Number: US-JNJCH-2010006285

PATIENT
  Sex: Female

DRUGS (4)
  1. ASPIRIN [Suspect]
     Indication: ACUTE CORONARY SYNDROME
     Dosage: TEXT:325 MG THEN 81 MG
     Route: 065
  2. ANTICOAGULANTS [Suspect]
     Indication: ACUTE CORONARY SYNDROME
     Dosage: TEXT:1IN1 DAY, 2 IN1 DAY (2.5MG OR 5MG DAILY)
     Route: 048
     Dates: start: 20091112, end: 20091113
  3. PLACEBO [Suspect]
     Indication: ACUTE CORONARY SYNDROME
     Dosage: TEXT:1 IN 1 DAY / 2 IN 1 DAY
     Route: 048
     Dates: start: 20091112, end: 20091113
  4. CLOPIDOGREL [Suspect]
     Indication: ACUTE CORONARY SYNDROME
     Dosage: TEXT:75 MG IN 1 DAY
     Route: 065

REACTIONS (1)
  - VAGINAL HAEMORRHAGE [None]
